FAERS Safety Report 24152665 (Version 1)
Quarter: 2024Q3

REPORT INFORMATION
  Report Type: Spontaneous
  Country: US (occurrence: None)
  Receive Date: 20240729
  Receipt Date: 20240729
  Transmission Date: 20241016
  Serious: Yes (Death, Life-Threatening, Hospitalization, Disabling)
  Sender: Public
  Company Number: None

PATIENT
  Age: 27 Year
  Sex: Male
  Weight: 99 kg

DRUGS (5)
  1. HERBALS\MITRAGYNINE [Suspect]
     Active Substance: HERBALS\MITRAGYNINE
     Indication: Post-traumatic stress disorder
  2. GABAPENTIN [Concomitant]
     Active Substance: GABAPENTIN
  3. VALIUM [Concomitant]
     Active Substance: DIAZEPAM
  4. BENADRYL [Concomitant]
     Active Substance: DIPHENHYDRAMINE HYDROCHLORIDE
  5. OTC NAUSEA MEDS [Concomitant]

REACTIONS (3)
  - Seizure [None]
  - Substance use [None]
  - Post-traumatic stress disorder [None]

NARRATIVE: CASE EVENT DATE: 20240418
